FAERS Safety Report 8381906-8 (Version None)
Quarter: 2012Q2

REPORT INFORMATION
  Report Type: 
  Country: None (occurrence: None)
  Receive Date: 20120522
  Receipt Date: 20120522
  Transmission Date: 20120825
  Serious: Yes (Hospitalization)
  Sender: FDA-Public Use
  Company Number: None

PATIENT
  Age: 82 Year
  Sex: Male
  Weight: 63.5036 kg

DRUGS (1)
  1. MIRTAZAPINE [Suspect]

REACTIONS (2)
  - DYSARTHRIA [None]
  - GAIT DISTURBANCE [None]
